FAERS Safety Report 7964632-6 (Version None)
Quarter: 2011Q4

REPORT INFORMATION
  Report Type: 
  Country: None (occurrence: None)
  Receive Date: 20111208
  Receipt Date: 20111128
  Transmission Date: 20120403
  Serious: Yes (Hospitalization)
  Sender: FDA-Public Use
  Company Number: US-BAYER-2011-034354

PATIENT
  Age: 22 Year
  Sex: Female
  Weight: 79.365 kg

DRUGS (4)
  1. SINGULAIR [Concomitant]
     Dosage: 10 MG, UNK
     Route: 048
     Dates: end: 20090421
  2. MULTI-VITAMIN [Concomitant]
  3. YAZ [Suspect]
     Indication: ACNE
     Dosage: UNK
     Dates: start: 20080701, end: 20090401
  4. YAZ [Suspect]
     Indication: CONTRACEPTION

REACTIONS (5)
  - CHEST PAIN [None]
  - EMOTIONAL DISTRESS [None]
  - PULMONARY EMBOLISM [None]
  - DEEP VEIN THROMBOSIS [None]
  - INJURY [None]
